FAERS Safety Report 8309896-4 (Version None)
Quarter: 2012Q2

REPORT INFORMATION
  Report Type: 
  Country: None (occurrence: None)
  Receive Date: 20120425
  Receipt Date: 20120417
  Transmission Date: 20120825
  Serious: Yes (Hospitalization)
  Sender: FDA-Public Use
  Company Number: US-UCBSA-055605

PATIENT
  Sex: Female

DRUGS (2)
  1. VIMPAT [Suspect]
  2. KEPPRA [Suspect]

REACTIONS (3)
  - CONVULSION [None]
  - ABNORMAL BEHAVIOUR [None]
  - MATERNAL EXPOSURE DURING PREGNANCY [None]
